FAERS Safety Report 5275919-2 (Version None)
Quarter: 2007Q1

REPORT INFORMATION
  Report Type: 
  Country: None (occurrence: None)
  Receive Date: 20061219
  Receipt Date: 20061003
  Transmission Date: 20070707
  Serious: Yes (Hospitalization)
  Sender: FDA-Public Use
  Company Number: US-JNJFOC-20061001206

PATIENT
  Age: 31 Year
  Sex: Female
  Weight: 105.2 kg

DRUGS (5)
  1. ORTHO EVRA [Suspect]
     Indication: CONTRACEPTION
     Dosage: , 1 IN 1 WEEK, TRANSDERMAL
     Route: 062
     Dates: end: 20050601
  2. DEPO-PROVERA SUSPENSION/INJ [Concomitant]
  3. XANAX [Concomitant]
  4. DARVOCET-N 100 [Concomitant]
  5. LEXAPRO [Concomitant]

REACTIONS (2)
  - DEEP VEIN THROMBOSIS [None]
  - PULMONARY EMBOLISM [None]
